FAERS Safety Report 16891764 (Version 2)
Quarter: 2019Q4

REPORT INFORMATION
  Report Type: Spontaneous
  Country: US (occurrence: US)
  Receive Date: 20191007
  Receipt Date: 20191016
  Transmission Date: 20200122
  Serious: Yes (Hospitalization)
  Sender: FDA-Public Use
  Company Number: US-ACTELION-A-US2019-196440

PATIENT
  Sex: Female

DRUGS (1)
  1. OPSUMIT [Suspect]
     Active Substance: MACITENTAN
     Indication: PRODUCT USED FOR UNKNOWN INDICATION
     Dosage: UNK
     Route: 048
     Dates: end: 20191007

REACTIONS (5)
  - Oxygen saturation decreased [Unknown]
  - Chest pain [Unknown]
  - Mitral valve stenosis [Unknown]
  - Hospitalisation [Unknown]
  - Dyspnoea [Unknown]
